FAERS Safety Report 10026112 (Version 1)
Quarter: 2014Q1

REPORT INFORMATION
  Report Type: Spontaneous
  Country: US (occurrence: US)
  Receive Date: 20140320
  Receipt Date: 20140320
  Transmission Date: 20141002
  Serious: No
  Sender: FDA-Public Use
  Company Number: US-TEVA-468490USA

PATIENT
  Age: 72 Year
  Sex: Female
  Weight: 59.02 kg

DRUGS (7)
  1. ACTIQ [Suspect]
     Indication: PAIN
     Dosage: 3200 MICROGRAM DAILY;
     Route: 048
  2. WELLBUTRIN [Concomitant]
     Indication: DEPRESSION
  3. CYMBALTA [Concomitant]
     Indication: DEPRESSION
  4. SENOKOT [Concomitant]
     Indication: CONSTIPATION
  5. GLYCOLAX [Concomitant]
     Indication: CONSTIPATION
  6. AMITIZA [Concomitant]
     Indication: CONSTIPATION
  7. BACLOFEN [Concomitant]
     Indication: MUSCLE SPASMS

REACTIONS (10)
  - Fat tissue decreased [Unknown]
  - Crying [Not Recovered/Not Resolved]
  - Pain [Not Recovered/Not Resolved]
  - Neuralgia [Not Recovered/Not Resolved]
  - Pain [Not Recovered/Not Resolved]
  - Musculoskeletal chest pain [Not Recovered/Not Resolved]
  - Burning sensation [Not Recovered/Not Resolved]
  - Breast pain [Not Recovered/Not Resolved]
  - Movement disorder [Not Recovered/Not Resolved]
  - Off label use [Unknown]
